FAERS Safety Report 11461162 (Version 1)
Quarter: 2015Q3

REPORT INFORMATION
  Report Type: Spontaneous
  Country: US (occurrence: US)
  Receive Date: 20150831
  Receipt Date: 20150831
  Transmission Date: 20151125
  Serious: No
  Sender: FDA-Public Use
  Company Number: US-ELI_LILLY_AND_COMPANY-US200911006149

PATIENT
  Sex: Female
  Weight: 56.69 kg

DRUGS (5)
  1. AMBIEN [Concomitant]
     Active Substance: ZOLPIDEM TARTRATE
     Dosage: 10 D/F, UNK
  2. ORACON [Concomitant]
     Active Substance: DIMETHISTERONE\ETHINYL ESTRADIOL
     Dosage: 1 D/F, DAILY (1/D)
  3. CYMBALTA [Suspect]
     Active Substance: DULOXETINE HYDROCHLORIDE
     Indication: MAJOR DEPRESSION
     Dosage: 1 D/F, UNK
     Route: 048
     Dates: start: 20080308, end: 20080427
  4. COLACE [Concomitant]
     Active Substance: DOCUSATE SODIUM
     Dosage: 200 D/F, 2/D
  5. WELLBUTRIN [Concomitant]
     Active Substance: BUPROPION HYDROCHLORIDE

REACTIONS (4)
  - Thinking abnormal [Unknown]
  - Suicidal ideation [Recovering/Resolving]
  - Hypersomnia [Unknown]
  - Depressed mood [Unknown]
